FAERS Safety Report 15722630 (Version 1)
Quarter: 2018Q4

REPORT INFORMATION
  Report Type: Spontaneous
  Country: US (occurrence: US)
  Receive Date: 20181213
  Receipt Date: 20181213
  Transmission Date: 20190205
  Serious: Yes (Hospitalization)
  Sender: FDA-Public Use
  Company Number: None

PATIENT
  Sex: Male

DRUGS (11)
  1. MONTELUKAST SODIUM. [Concomitant]
     Active Substance: MONTELUKAST SODIUM
  2. IPRATROPIUM BROMIDE. [Concomitant]
     Active Substance: IPRATROPIUM BROMIDE
  3. IPRATROPILUM BR [Suspect]
     Active Substance: IPRATROPIUM
     Indication: BRONCHIECTASIS
     Dosage: ?          OTHER FREQUENCY:EVERY 4 -6 HOURS;OTHER ROUTE:NEBULIZER?
  4. LEVALBUTEROL. [Suspect]
     Active Substance: LEVALBUTEROL
     Indication: BRONCHIECTASIS
     Dosage: ?          OTHER FREQUENCY:EVERY 4 HOURS;OTHER ROUTE:NEBULIZER?
  5. RANITIDINE HCL [Concomitant]
     Active Substance: RANITIDINE HYDROCHLORIDE
  6. BACITRACIN. [Concomitant]
     Active Substance: BACITRACIN
  7. ACETYLCYSTEINE. [Concomitant]
     Active Substance: ACETYLCYSTEINE
  8. CLARITIN D 24 HOUR [Concomitant]
  9. LANSOPRAZOLE ODT [Concomitant]
  10. FLONASE ALLERGY RELIEF [Concomitant]
     Active Substance: FLUTICASONE PROPIONATE
  11. LEVALBUTEROL HCL [Concomitant]
     Active Substance: LEVALBUTEROL HYDROCHLORIDE

REACTIONS (1)
  - Pseudomonas infection [None]
